FAERS Safety Report 20974073 (Version 1)
Quarter: 2022Q2

REPORT INFORMATION
  Report Type: Spontaneous
  Country: CN (occurrence: CN)
  Receive Date: 20220617
  Receipt Date: 20220617
  Transmission Date: 20220720
  Serious: Yes (Hospitalization)
  Sender: FDA-Public Use
  Company Number: None

PATIENT
  Age: 33 Year
  Sex: Female
  Weight: 65 kg

DRUGS (10)
  1. CYCLOPHOSPHAMIDE [Suspect]
     Active Substance: CYCLOPHOSPHAMIDE
     Indication: Invasive breast carcinoma
     Dosage: FIRST CHEMOTHERAPY
     Route: 041
  2. CYCLOPHOSPHAMIDE [Suspect]
     Active Substance: CYCLOPHOSPHAMIDE
     Dosage: CYCLOPHOSPHAMIDE (0.8G) + 5% GLUCOSE INJECTION (500ML) ONCE FOR 2 HOURS
     Route: 041
     Dates: start: 20220523, end: 20220523
  3. CYCLOPHOSPHAMIDE [Suspect]
     Active Substance: CYCLOPHOSPHAMIDE
     Dosage: DOSE RE-INTRODUCED
     Route: 041
  4. PACLITAXEL [Suspect]
     Active Substance: PACLITAXEL
     Indication: Invasive breast carcinoma
     Dosage: FIRST CHEMOTHERAPY
     Route: 041
  5. PACLITAXEL [Suspect]
     Active Substance: PACLITAXEL
     Dosage: PACLITAXEL (ALBUMIN-BINDING TYPE) (140MG) + 5% GLUCOSE (500ML), ONCE FOR 2 HOURS
     Route: 041
     Dates: start: 20220523, end: 20220523
  6. PACLITAXEL [Suspect]
     Active Substance: PACLITAXEL
     Dosage: DOSE RE-INTRODUCED
     Route: 041
  7. DEXTROSE [Suspect]
     Active Substance: DEXTROSE
     Indication: Medication dilution
     Dosage: CYCLOPHOSPHAMIDE (0.8G) + 5% GLUCOSE INJECTION (500ML) ONCE FOR 2 HOURS
     Route: 041
     Dates: start: 20220523, end: 20220523
  8. DEXTROSE [Suspect]
     Active Substance: DEXTROSE
     Dosage: PACLITAXEL (ALBUMIN-BINDING TYPE) (140MG) + 5% GLUCOSE (500ML), ONCE FOR 2 HOURS
     Route: 041
     Dates: start: 20220523, end: 20220523
  9. DEXTROSE [Suspect]
     Active Substance: DEXTROSE
     Dosage: DOSE RE-INTRODUCED, CYCLOPHOSPHAMIDE + GLUCOSE
     Route: 041
  10. DEXTROSE [Suspect]
     Active Substance: DEXTROSE
     Dosage: DOSE RE-INTRODUCED, PACLITAXEL + GLUCOSE
     Route: 041

REACTIONS (12)
  - Dermatitis allergic [Recovering/Resolving]
  - Rash [Recovering/Resolving]
  - Pruritus [Recovering/Resolving]
  - Dermatomyositis [Recovering/Resolving]
  - Skin exfoliation [Recovering/Resolving]
  - Urticaria [Recovering/Resolving]
  - Erythema [Recovering/Resolving]
  - Pain [Recovered/Resolved]
  - Arthralgia [Recovering/Resolving]
  - Pain in extremity [Recovering/Resolving]
  - Pain in extremity [Recovering/Resolving]
  - Mental fatigue [Recovering/Resolving]

NARRATIVE: CASE EVENT DATE: 20220530
